FAERS Safety Report 5519902-8 (Version None)
Quarter: 2007Q4

REPORT INFORMATION
  Report Type: 
  Country: None (occurrence: None)
  Receive Date: 20071116
  Receipt Date: 20071012
  Transmission Date: 20080405
  Serious: No
  Sender: FDA-Public Use
  Company Number: A0688046A

PATIENT
  Sex: Female

DRUGS (7)
  1. COREG CR [Suspect]
     Dosage: 8CAP CUMULATIVE DOSE
     Route: 048
  2. COREG [Suspect]
     Indication: DRUG USE FOR UNKNOWN INDICATION
     Dosage: 3.125MG TWICE PER DAY
     Route: 048
  3. CELEBREX [Concomitant]
  4. FOSAMAX [Concomitant]
  5. EVISTA [Concomitant]
  6. IMDUR [Concomitant]
  7. POLYPHARMACY [Concomitant]

REACTIONS (2)
  - LETHARGY [None]
  - PERFORMANCE STATUS DECREASED [None]
